FAERS Safety Report 22169023 (Version 1)
Quarter: 2023Q2

REPORT INFORMATION
  Report Type: Spontaneous
  Country: DE (occurrence: DE)
  Receive Date: 20230404
  Receipt Date: 20230404
  Transmission Date: 20230721
  Serious: Yes (Hospitalization)
  Sender: FDA-Public Use
  Company Number: DE-STRIDES ARCOLAB LIMITED-2023SP004578

PATIENT
  Age: 37 Year
  Sex: Male

DRUGS (5)
  1. NEVIRAPINE [Suspect]
     Active Substance: NEVIRAPINE
     Indication: Antiretroviral therapy
     Dosage: UNK
     Route: 065
  2. DOLUTEGRAVIR [Suspect]
     Active Substance: DOLUTEGRAVIR
     Indication: Antiretroviral therapy
     Dosage: UNK
     Route: 065
  3. ZIDOVUDINE [Suspect]
     Active Substance: ZIDOVUDINE
     Indication: Antiretroviral therapy
     Dosage: UNK
     Route: 065
  4. GANCICLOVIR [Concomitant]
     Active Substance: GANCICLOVIR
     Indication: Cytomegalovirus viraemia
     Dosage: 5 MILLIGRAM/KILOGRAM, UNKNOWN
     Route: 042
  5. GANCICLOVIR [Concomitant]
     Active Substance: GANCICLOVIR
     Dosage: UNK
     Route: 065

REACTIONS (2)
  - Immune recovery uveitis [Recovered/Resolved]
  - Retinal vasculitis [Recovered/Resolved]
